APPROVED DRUG PRODUCT: SYMBYAX
Active Ingredient: FLUOXETINE HYDROCHLORIDE; OLANZAPINE
Strength: EQ 25MG BASE;EQ 3MG BASE
Dosage Form/Route: CAPSULE;ORAL
Application: N021520 | Product #001
Applicant: ELI LILLY AND CO
Approved: Apr 9, 2007 | RLD: Yes | RS: No | Type: DISCN